FAERS Safety Report 13859849 (Version 1)
Quarter: 2017Q3

REPORT INFORMATION
  Report Type: Spontaneous
  Country: US (occurrence: US)
  Receive Date: 20170811
  Receipt Date: 20170811
  Transmission Date: 20171127
  Serious: No
  Sender: FDA-Public Use
  Company Number: US-ASTRAZENECA-2004UW02160

PATIENT
  Sex: Female
  Weight: 78.9 kg

DRUGS (8)
  1. BYDUREON [Suspect]
     Active Substance: EXENATIDE
     Indication: BLOOD GLUCOSE INCREASED
     Dosage: 2 MG, ONCE A WEEK
     Route: 058
     Dates: start: 20170724
  2. ROSUVASTATIN. [Suspect]
     Active Substance: ROSUVASTATIN
     Indication: HYPERCHOLESTEROLAEMIA
     Route: 048
  3. XANAX [Concomitant]
     Active Substance: ALPRAZOLAM
  4. AMBIEN [Concomitant]
     Active Substance: ZOLPIDEM TARTRATE
  5. AVALIDE [Concomitant]
     Active Substance: HYDROCHLOROTHIAZIDE\IRBESARTAN
  6. TOUJEO [Concomitant]
     Active Substance: INSULIN GLARGINE
     Indication: BLOOD GLUCOSE INCREASED
  7. OXYCONTIN [Concomitant]
     Active Substance: OXYCODONE HYDROCHLORIDE
  8. HUMALOG INSULIN PEN [Concomitant]
     Indication: BLOOD GLUCOSE INCREASED
     Dates: start: 2014

REACTIONS (4)
  - Drug dose omission [Unknown]
  - Pain in extremity [Unknown]
  - Blood glucose increased [Unknown]
  - Muscle spasms [Unknown]
